FAERS Safety Report 9732835 (Version 2)
Quarter: 2013Q4

REPORT INFORMATION
  Report Type: Spontaneous
  Country: US (occurrence: US)
  Receive Date: 20131205
  Receipt Date: 20131205
  Transmission Date: 20140711
  Serious: No
  Sender: FDA-Public Use
  Company Number: US-ABBVIE-12P-163-0933993-00

PATIENT
  Sex: 0

DRUGS (2)
  1. OMNICEF [Suspect]
     Indication: SINUS DISORDER
  2. OMNICEF [Suspect]
     Indication: OROPHARYNGEAL PAIN

REACTIONS (1)
  - Diarrhoea [Unknown]
